FAERS Safety Report 22081936 (Version 1)
Quarter: 2023Q1

REPORT INFORMATION
  Report Type: Report from Study
  Country: US (occurrence: None)
  Receive Date: 20230310
  Receipt Date: 20230310
  Transmission Date: 20230418
  Serious: Yes (Death)
  Sender: FDA-Public Use
  Company Number: US-ROCHE-3304987

PATIENT

DRUGS (1)
  1. VENETOCLAX [Suspect]
     Active Substance: VENETOCLAX
     Indication: Acute myeloid leukaemia
     Dosage: .MOST RECENT DOSE WAS ADMINISTERED ON 16/JUN/2021. CYCLE 3 COMPLETED ON 07/JUL/2021
     Route: 048
     Dates: start: 20210408

REACTIONS (1)
  - Death [Fatal]
